FAERS Safety Report 19574590 (Version 1)
Quarter: 2021Q3

REPORT INFORMATION
  Report Type: Spontaneous
  Country: US (occurrence: US)
  Receive Date: 20210719
  Receipt Date: 20210719
  Transmission Date: 20211014
  Serious: No
  Sender: FDA-Public Use
  Company Number: US-SUN PHARMACEUTICAL INDUSTRIES LTD-2021R1-296975

PATIENT
  Age: 53 Year
  Sex: Male
  Weight: 58.96 kg

DRUGS (2)
  1. TADALAFIL. [Suspect]
     Active Substance: TADALAFIL
     Indication: PRODUCT USED FOR UNKNOWN INDICATION
     Dosage: 1 TABLET
     Route: 048
     Dates: start: 20210506
  2. TADALAFIL. [Suspect]
     Active Substance: TADALAFIL
     Dosage: 1 TABLET
     Route: 048
     Dates: start: 20210506

REACTIONS (2)
  - Rash [Unknown]
  - Peripheral swelling [Unknown]

NARRATIVE: CASE EVENT DATE: 20210506
